FAERS Safety Report 24152786 (Version 3)
Quarter: 2025Q3

REPORT INFORMATION
  Report Type: Spontaneous
  Country: US (occurrence: US)
  Receive Date: 20240730
  Receipt Date: 20250721
  Transmission Date: 20251021
  Serious: Yes (Hospitalization, Other)
  Sender: SANOFI AVENTIS
  Company Number: US-SA-SAC20240729000274

PATIENT
  Sex: Male
  Weight: 130 kg

DRUGS (10)
  1. DUPIXENT [Suspect]
     Active Substance: DUPILUMAB
     Indication: Nasal polyps
     Dosage: 300 MG, QOW
     Route: 058
     Dates: start: 202209
  2. GABAPENTIN [Concomitant]
     Active Substance: GABAPENTIN
  3. NABUMETONE [Concomitant]
     Active Substance: NABUMETONE
  4. ACETAMINOPHEN\HYDROCODONE [Concomitant]
     Active Substance: ACETAMINOPHEN\HYDROCODONE
  5. ONDANSETRON [Concomitant]
     Active Substance: ONDANSETRON
  6. CIPROFLOXACIN [Concomitant]
     Active Substance: CIPROFLOXACIN
  7. PIOGLITAZONE [Concomitant]
     Active Substance: PIOGLITAZONE
  8. GENTAMICIN SULFATE [Concomitant]
     Active Substance: GENTAMICIN SULFATE
  9. IBUPROFEN [Concomitant]
     Active Substance: IBUPROFEN
  10. MELOXICAM [Concomitant]
     Active Substance: MELOXICAM

REACTIONS (12)
  - Nephrolithiasis [Recovered/Resolved]
  - Intervertebral disc degeneration [Recovering/Resolving]
  - Spondylolisthesis [Recovering/Resolving]
  - Intervertebral disc protrusion [Recovering/Resolving]
  - Spinal decompression [Recovering/Resolving]
  - Migraine [Recovered/Resolved]
  - Nasal polyps [Recovering/Resolving]
  - Condition aggravated [Recovering/Resolving]
  - Paranasal sinus discomfort [Recovering/Resolving]
  - Upper-airway cough syndrome [Recovering/Resolving]
  - Secretion discharge [Recovering/Resolving]
  - Nasal congestion [Recovering/Resolving]
